FAERS Safety Report 18395295 (Version 1)
Quarter: 2020Q4

REPORT INFORMATION
  Report Type: Other
  Country: ES (occurrence: ES)
  Receive Date: 20201017
  Receipt Date: 20201017
  Transmission Date: 20210114
  Serious: Yes (Other)
  Sender: FDA-Public Use
  Company Number: ES-HEALTHCARE PHARMACEUTICALS LTD.-2092882

PATIENT
  Age: 71 Year
  Sex: Male

DRUGS (1)
  1. DOXORUBICIN HYDROCHLORIDE. [Suspect]
     Active Substance: DOXORUBICIN HYDROCHLORIDE
     Indication: HEPATOCELLULAR CARCINOMA
     Route: 065

REACTIONS (1)
  - Gastroduodenal ulcer [Recovered/Resolved with Sequelae]
